FAERS Safety Report 5767070-X (Version None)
Quarter: 2008Q2

REPORT INFORMATION
  Report Type: 
  Country: None (occurrence: None)
  Receive Date: 20080612
  Receipt Date: 20080606
  Transmission Date: 20081010
  Serious: Yes (Congenital Anomaly, Other)
  Sender: FDA-Public Use
  Company Number: PT-AVENTIS-200812679EU

PATIENT
  Sex: Female

DRUGS (1)
  1. LOVENOX [Suspect]
     Route: 058

REACTIONS (4)
  - ABORTION INDUCED [None]
  - DRUG EXPOSURE DURING PREGNANCY [None]
  - GENE MUTATION [None]
  - RADIUS FRACTURE [None]
